FAERS Safety Report 13780587 (Version 2)
Quarter: 2017Q3

REPORT INFORMATION
  Report Type: Spontaneous
  Country: US (occurrence: US)
  Receive Date: 20170724
  Receipt Date: 20170811
  Transmission Date: 20171127
  Serious: No
  Sender: FDA-Public Use
  Company Number: US-PFIZER INC-2017315704

PATIENT
  Age: 39 Year
  Sex: Male

DRUGS (2)
  1. XELJANZ XR [Suspect]
     Active Substance: TOFACITINIB CITRATE
     Dosage: 11 MG, DAILY
  2. METHOTREXATE. [Suspect]
     Active Substance: METHOTREXATE
     Dosage: 25 MG, WEEKLY (10 TABS EVERY WEEK)
     Route: 048

REACTIONS (8)
  - Mean cell volume increased [Unknown]
  - Platelet count increased [Unknown]
  - Arthralgia [Unknown]
  - White blood cell count increased [Unknown]
  - Pain in extremity [Unknown]
  - Aspartate aminotransferase decreased [Unknown]
  - Mean cell haemoglobin increased [Unknown]
  - Red blood cell count decreased [Unknown]
